FAERS Safety Report 21354720 (Version 5)
Quarter: 2022Q4

REPORT INFORMATION
  Report Type: Spontaneous
  Country: US (occurrence: US)
  Receive Date: 20220920
  Receipt Date: 20221207
  Transmission Date: 20230112
  Serious: No
  Sender: FDA-Public Use
  Company Number: US-PFIZER INC-202201104439

PATIENT
  Age: 15 Year
  Sex: Male
  Weight: 54.422 kg

DRUGS (2)
  1. GENOTROPIN [Suspect]
     Active Substance: SOMATROPIN
     Indication: Nephropathy
     Dosage: 1X/DAY (2.1 UNKNOWN IF MG OR ML, INJECTED NIGHTLY)
  2. GENOTROPIN [Suspect]
     Active Substance: SOMATROPIN
     Dosage: 1X/DAY (2.2 ONCE A DAY)

REACTIONS (5)
  - Drug dose omission by device [Unknown]
  - Device breakage [Unknown]
  - Device information output issue [Unknown]
  - Device occlusion [Unknown]
  - Off label use [Unknown]
